FAERS Safety Report 7392955-0 (Version None)
Quarter: 2011Q2

REPORT INFORMATION
  Report Type: 
  Country: None (occurrence: None)
  Receive Date: 20110404
  Receipt Date: 20110331
  Transmission Date: 20111010
  Serious: Yes (Hospitalization)
  Sender: FDA-Public Use
  Company Number: JP-ABBOTT-10P-087-0675722-00

PATIENT
  Sex: Male

DRUGS (10)
  1. LOPERAMIDE HYDROCHLORIDE [Concomitant]
     Indication: DIARRHOEA
     Route: 048
     Dates: start: 20070711
  2. KALETRA [Suspect]
     Indication: HIV INFECTION
     Route: 048
     Dates: start: 20090204
  3. TRUVADA [Suspect]
     Indication: HIV INFECTION
     Route: 048
     Dates: start: 20080625, end: 20091111
  4. MECOBALAMIN [Concomitant]
     Indication: NEUROPATHY PERIPHERAL
  5. EPZICOM [Concomitant]
     Indication: HIV INFECTION
     Route: 048
     Dates: start: 20091112
  6. AMBROXOL HYDROCHLORIDE [Concomitant]
     Indication: BRONCHITIS CHRONIC
     Route: 048
     Dates: start: 20070711
  7. MECOBALAMIN [Concomitant]
     Indication: HIV INFECTION
     Route: 048
     Dates: start: 20070711
  8. NEVIRAPINE [Concomitant]
     Indication: HIV INFECTION
     Dosage: DAILY DOSE: 400 MG
     Dates: start: 20090203
  9. SODIUM GUALENATE HYDRATE/L-GLUTAMINE [Concomitant]
     Indication: GASTRITIS
     Route: 048
     Dates: start: 20070711
  10. LACTOMIN [Concomitant]
     Indication: DIARRHOEA
     Route: 048
     Dates: start: 20070711

REACTIONS (3)
  - OSTEOMALACIA [None]
  - FANCONI SYNDROME [None]
  - FANCONI SYNDROME ACQUIRED [None]
